FAERS Safety Report 23696012 (Version 1)
Quarter: 2024Q2

REPORT INFORMATION
  Report Type: Spontaneous
  Country: US (occurrence: US)
  Receive Date: 20240402
  Receipt Date: 20240402
  Transmission Date: 20240716
  Serious: Yes (Other)
  Sender: FDA-Public Use
  Company Number: US-AMAROX PHARMA-HET2024US00912

PATIENT
  Sex: Female

DRUGS (4)
  1. ALLOPURINOL [Suspect]
     Active Substance: ALLOPURINOL
     Indication: Hyperuricaemia
     Dosage: UNK
     Route: 065
  2. ALLOPURINOL [Suspect]
     Active Substance: ALLOPURINOL
     Indication: Gouty tophus
  3. PEGLOTICASE [Concomitant]
     Active Substance: PEGLOTICASE
     Indication: Hyperuricaemia
     Dosage: UNK
     Route: 065
  4. PEGLOTICASE [Concomitant]
     Active Substance: PEGLOTICASE
     Indication: Gouty tophus

REACTIONS (1)
  - Severe cutaneous adverse reaction [Unknown]
